FAERS Safety Report 5748610-3 (Version None)
Quarter: 2008Q2

REPORT INFORMATION
  Report Type: 
  Country: None (occurrence: None)
  Receive Date: 20080512
  Receipt Date: 20080414
  Transmission Date: 20081010
  Serious: Yes (Other)
  Sender: FDA-Public Use
  Company Number: WSDF_00718

PATIENT
  Age: 34 Year
  Sex: Female
  Weight: 74 kg

DRUGS (4)
  1. WINRHO SDF [Suspect]
     Indication: PROPHYLAXIS
     Dosage: 1500 IU IM
     Route: 030
     Dates: start: 20080401, end: 20080401
  2. WINRHO SDF [Suspect]
     Indication: RHESUS HAEMOLYTIC DISEASE OF NEWBORN
     Dosage: 1500 IU IM
     Route: 030
     Dates: start: 20080401, end: 20080401
  3. NATELBEN [Concomitant]
  4. TARDYFERONFOL [Concomitant]

REACTIONS (7)
  - ABDOMINAL PAIN [None]
  - DRUG EXPOSURE DURING PREGNANCY [None]
  - DRY MOUTH [None]
  - LIP DRY [None]
  - MALAISE [None]
  - PYREXIA [None]
  - THIRST [None]
